FAERS Safety Report 19056161 (Version 2)
Quarter: 2021Q2

REPORT INFORMATION
  Report Type: Spontaneous
  Country: US (occurrence: US)
  Receive Date: 20210325
  Receipt Date: 20210506
  Transmission Date: 20210717
  Serious: No
  Sender: FDA-Public Use
  Company Number: US-ASTRAZENECA-2021A099416

PATIENT
  Age: 774 Month
  Sex: Male
  Weight: 68 kg

DRUGS (2)
  1. SYMBICORT [Suspect]
     Active Substance: BUDESONIDE\FORMOTEROL FUMARATE DIHYDRATE
     Indication: CHRONIC OBSTRUCTIVE PULMONARY DISEASE
     Dosage: 160?4.5 MCG TWO PUFFS, TWO TIMES A DAY
     Route: 055
     Dates: end: 202102
  2. SYMBICORT [Suspect]
     Active Substance: BUDESONIDE\FORMOTEROL FUMARATE DIHYDRATE
     Indication: EMPHYSEMA
     Dosage: 160?4.5 MCG TWO PUFFS, TWO TIMES A DAY
     Route: 055
     Dates: end: 202102

REACTIONS (6)
  - Respiratory tract congestion [Unknown]
  - Device malfunction [Unknown]
  - Cough [Not Recovered/Not Resolved]
  - Device delivery system issue [Unknown]
  - Dyspnoea [Not Recovered/Not Resolved]
  - Drug dose omission by device [Not Recovered/Not Resolved]

NARRATIVE: CASE EVENT DATE: 202102
